FAERS Safety Report 14936703 (Version 2)
Quarter: 2018Q2

REPORT INFORMATION
  Report Type: Spontaneous
  Country: PT (occurrence: PT)
  Receive Date: 20180525
  Receipt Date: 20180530
  Transmission Date: 20180711
  Serious: Yes (Other)
  Sender: FDA-Public Use
  Company Number: PT-009507513-1805PRT007573

PATIENT
  Age: 56 Year
  Sex: Male
  Weight: 64 kg

DRUGS (2)
  1. BRIDION [Suspect]
     Active Substance: SUGAMMADEX
     Dosage: 8 MG/KG, UNK, DOSE 2 MINUTES AFTER: 400 MG
  2. BRIDION [Suspect]
     Active Substance: SUGAMMADEX
     Dosage: 16 MG/KG, UNK, INITIAL DOSE: 800 MG

REACTIONS (2)
  - Drug ineffective [Recovered/Resolved]
  - Incorrect dose administered [Unknown]
